FAERS Safety Report 5956848-5 (Version None)
Quarter: 2008Q4

REPORT INFORMATION
  Report Type: 
  Country: None (occurrence: None)
  Receive Date: 20081118
  Receipt Date: 20081107
  Transmission Date: 20090506
  Serious: Yes (Hospitalization)
  Sender: FDA-Public Use
  Company Number: CA-PFIZER INC-2008095243

PATIENT
  Sex: Male
  Weight: 73 kg

DRUGS (5)
  1. MARAVIROC [Suspect]
     Indication: HIV INFECTION
     Route: 048
     Dates: start: 20070905
  2. XANAX [Concomitant]
     Route: 048
     Dates: start: 20000125
  3. PANTOPRAZOLE SODIUM [Concomitant]
     Route: 048
     Dates: start: 20081105
  4. ABACAVIR SULFATE LAMIVUDINE AND ZIDOVUDINE [Concomitant]
     Route: 048
     Dates: start: 20080108
  5. KALETRA [Concomitant]
     Route: 048
     Dates: start: 20050517

REACTIONS (1)
  - MYOCARDIAL INFARCTION [None]
